FAERS Safety Report 12933837 (Version 18)
Quarter: 2018Q1

REPORT INFORMATION
  Report Type: Report from Study
  Country: None (occurrence: AT)
  Receive Date: 20161111
  Receipt Date: 20180102
  Transmission Date: 20180508
  Serious: Yes (Hospitalization)
  Sender: FDA-Public Use
  Company Number: AT-ABBVIE-16P-009-1773385-00

PATIENT
  Age: 74 Year
  Sex: Female
  Weight: 59 kg

DRUGS (35)
  1. VINCRISTINE [Suspect]
     Active Substance: VINCRISTINE
     Dosage: MOST RECENT DOSE  PRIOR TO NEUTROPENIA AND WORSENING ANEMIA WAS 16 NOV 16
     Route: 042
  2. OPTINEM [Concomitant]
     Active Substance: MEROPENEM
     Indication: FEBRILE NEUTROPENIA
     Dates: start: 20161029, end: 20161107
  3. CRESTOR [Concomitant]
     Active Substance: ROSUVASTATIN CALCIUM
     Indication: HYPERCHOLESTEROLAEMIA
  4. MOLAXOLE [Concomitant]
     Active Substance: POLYETHYLENE GLYCOL 3350\POTASSIUM CHLORIDE\SODIUM BICARBONATE\SODIUM CHLORIDE
     Indication: CONSTIPATION
  5. MYCOSTATIN [Concomitant]
     Active Substance: NYSTATIN
     Indication: INTERTRIGO
     Dates: start: 20161124, end: 201612
  6. ENALAPRIL [Concomitant]
     Active Substance: ENALAPRIL
     Indication: HYPERTENSION
  7. RITUXIMAB. [Suspect]
     Active Substance: RITUXIMAB
     Dosage: MOST RECENT DOSE (650MG) PRIOR TO WORSENING ANEMIA AND NEUTROPENIA 12 JAN 17
     Route: 042
  8. VINCRISTINE [Suspect]
     Active Substance: VINCRISTINE
     Indication: B-CELL LYMPHOMA
     Dosage: MOST RECENT DOSE (2MG) PRIOR TO CRP INCREASE, INFECTION AND FN WAS 25 OCT 16
     Route: 042
     Dates: start: 20161025
  9. OPTINEM [Concomitant]
     Active Substance: MEROPENEM
     Indication: INFECTION
  10. NEXIUM [Concomitant]
     Active Substance: ESOMEPRAZOLE MAGNESIUM
     Indication: PRODUCT USED FOR UNKNOWN INDICATION
  11. TAVANIC [Concomitant]
     Active Substance: LEVOFLOXACIN
     Indication: INFECTION PROPHYLAXIS
     Dates: start: 20161119, end: 20170309
  12. TRAVOCORT [Concomitant]
     Indication: INTERTRIGO
     Dates: start: 20161114, end: 20161123
  13. VENETOCLAX. [Suspect]
     Active Substance: VENETOCLAX
     Dosage: DATE OF MOST RECENT DOSE (800MG) PRIOR TO INFECTION 03 NOV 16
     Route: 048
  14. RITUXIMAB. [Suspect]
     Active Substance: RITUXIMAB
     Dosage: MOST RECENT DOSE (650MG) PRIOR TO AGRANULCYTOSIS  16 NOV 16
     Route: 042
  15. CYCLOPHOSPHAMIDE. [Suspect]
     Active Substance: CYCLOPHOSPHAMIDE
     Indication: B-CELL LYMPHOMA
     Dosage: DOSES PRIOR TO EVENTS, 25 OCT 2016, 16 NOV 2016 AND 12 JAN 2017(1350MG)
     Route: 042
     Dates: start: 20161025
  16. DOXORUBICIN [Suspect]
     Active Substance: DOXORUBICIN
     Dosage: RECENT DOSE (85MG) PRIOR TO WORSENING ANEMIA AND NEUTROPENIA WAS 12 JAN 17
     Route: 042
  17. PREDNISONE. [Suspect]
     Active Substance: PREDNISONE
     Indication: B-CELL LYMPHOMA
     Dosage: DATE OF MOST RECENT DOSE (100MG) PRIOR TO CRP INCREASE, INFECTION AND FN WAS 29 OCT 16
     Route: 048
     Dates: start: 20161025
  18. THROMBO [Concomitant]
     Indication: THROMBOSIS PROPHYLAXIS
  19. JANUVIA [Concomitant]
     Active Substance: SITAGLIPTIN PHOSPHATE
     Indication: TYPE 2 DIABETES MELLITUS
  20. UNASYN [Concomitant]
     Active Substance: AMPICILLIN SODIUM\SULBACTAM SODIUM
     Indication: PYREXIA
     Route: 042
     Dates: start: 20161024, end: 20161028
  21. SERTRALINE [Concomitant]
     Active Substance: SERTRALINE HYDROCHLORIDE
     Indication: DEPRESSION
     Dates: start: 201612
  22. PREDNISONE. [Suspect]
     Active Substance: PREDNISONE
     Dosage: DATE OF MOST RECENT DOSE (100MG) PRIOR TO AGRANULOCYTOSIS WAS 20 NOV 16
     Route: 048
  23. PREDNISONE. [Suspect]
     Active Substance: PREDNISONE
     Dosage: DATE OF MOST RECENT DOSE (100MG) PRIOR TO NEUTROPENIA AND WORSENING ANEMIA WAS 16 JAN 17
     Route: 048
  24. VENETOCLAX. [Suspect]
     Active Substance: VENETOCLAX
     Indication: B-CELL LYMPHOMA
     Dosage: DATE OF MOST RECENT DOSE (800MG) PRIOR TO FEBRILE NEUTROPENIA AND CRP INCREASED 02 NOV 16
     Route: 048
     Dates: start: 20161028, end: 20161124
  25. DOXORUBICIN [Suspect]
     Active Substance: DOXORUBICIN
     Dosage: RECENT DOSE (90MG) PRIOR TO AGRANULOCYTOSIS  WAS 16 NOV 16
     Route: 042
  26. HYDAL [Concomitant]
     Active Substance: HYDROMORPHONE HYDROCHLORIDE
     Indication: PAIN
  27. RATIOGRASTIM [Concomitant]
     Active Substance: FILGRASTIM
     Indication: PRODUCT USED FOR UNKNOWN INDICATION
     Dates: start: 20161029, end: 20161101
  28. RATIOGRASTIM [Concomitant]
     Active Substance: FILGRASTIM
     Dates: start: 20161102, end: 20161107
  29. ZINC OXIDE. [Concomitant]
     Active Substance: ZINC OXIDE
     Indication: INTERTRIGO
     Dates: start: 20161124, end: 201612
  30. VENETOCLAX. [Suspect]
     Active Substance: VENETOCLAX
     Dosage: RECENT DOSE (600MG) PRIOR TO AGRANULOCYTOSIS, WORSENING ANEMIA AND NEUTROPENIA 24 NOV 16
     Route: 048
  31. RITUXIMAB. [Suspect]
     Active Substance: RITUXIMAB
     Indication: B-CELL LYMPHOMA
     Dosage: MOST RECENT DOSE (680MG) PRIOR TO CRP INCREASED, INFECTION AND FN 25 OCT 16
     Route: 042
     Dates: start: 20161025
  32. DOXORUBICIN [Suspect]
     Active Substance: DOXORUBICIN
     Indication: B-CELL LYMPHOMA
     Dosage: RECENT DOSE (90MG) PRIOR TO CRP INCREASE, INFECTION AND FN WAS 25 OCT 16
     Route: 042
     Dates: start: 20161025
  33. VINCRISTINE [Suspect]
     Active Substance: VINCRISTINE
     Dosage: MOST RECENT DOSE (2MG) PRIOR TO AGRANULOCYTOSIS WAS 16 NOV 16
     Route: 042
  34. TRITTICO [Concomitant]
     Active Substance: TRAZODONE HYDROCHLORIDE
     Indication: DEPRESSION
  35. PERFALGAN [Concomitant]
     Active Substance: ACETAMINOPHEN
     Indication: PYREXIA
     Dates: start: 20161025, end: 20161025

REACTIONS (6)
  - Agranulocytosis [Recovered/Resolved]
  - Infection [Recovered/Resolved]
  - Febrile neutropenia [Recovered/Resolved]
  - Anaemia [Recovered/Resolved]
  - C-reactive protein increased [Recovered/Resolved]
  - Neutropenia [Recovered/Resolved]

NARRATIVE: CASE EVENT DATE: 20161102
